FAERS Safety Report 15291190 (Version 1)
Quarter: 2018Q3

REPORT INFORMATION
  Report Type: Spontaneous
  Country: US (occurrence: US)
  Receive Date: 20180817
  Receipt Date: 20180817
  Transmission Date: 20181010
  Serious: No
  Sender: FDA-Public Use
  Company Number: US-NOVOPROD-597886

PATIENT
  Age: 42 Year
  Sex: Male
  Weight: 106.58 kg

DRUGS (2)
  1. TRETTEN [Suspect]
     Active Substance: FACTOR XIII CONCENTRATE (HUMAN)
     Indication: FACTOR XIII DEFICIENCY
     Dosage: 5334 U EVERY MONTH
     Route: 042
     Dates: start: 201711
  2. TRETTEN [Suspect]
     Active Substance: FACTOR XIII CONCENTRATE (HUMAN)
     Dosage: 5334 U EVERY MONTH
     Route: 042
     Dates: end: 201712

REACTIONS (4)
  - Contusion [Recovering/Resolving]
  - Drug ineffective [Unknown]
  - Haemorrhage [Recovering/Resolving]
  - Peripheral swelling [Recovering/Resolving]

NARRATIVE: CASE EVENT DATE: 201711
